FAERS Safety Report 8914192 (Version 2)
Quarter: 2012Q4

REPORT INFORMATION
  Report Type: 
  Country: US (occurrence: US)
  Receive Date: 20121119
  Receipt Date: 20121128
  Transmission Date: 20130627
  Serious: Yes (Other)
  Sender: FDA-Public Use
  Company Number: US-JNJFOC-A034591

PATIENT
  Age: 6 None
  Sex: Male
  Weight: 17.2 kg

DRUGS (6)
  1. ZYRTEC [Suspect]
     Route: 048
  2. ZYRTEC [Suspect]
     Indication: RHINITIS ALLERGIC
     Dosage: Daily Dose Qty: 5 mg
     Route: 048
     Dates: start: 20000831, end: 20000921
  3. DIMETAPP [Concomitant]
     Route: 065
     Dates: end: 20000831
  4. MOMETASONE FUROATE [Concomitant]
     Route: 061
  5. ALLERGENS [Concomitant]
     Route: 058
  6. DEXTROMETHORPHAN [Concomitant]
     Route: 065

REACTIONS (21)
  - Oculogyric crisis [Not Recovered/Not Resolved]
  - Confusional state [Not Recovered/Not Resolved]
  - Initial insomnia [Not Recovered/Not Resolved]
  - Headache [Not Recovered/Not Resolved]
  - Eye pain [Not Recovered/Not Resolved]
  - Feeling jittery [Recovering/Resolving]
  - Eye movement disorder [Not Recovered/Not Resolved]
  - Restlessness [Recovering/Resolving]
  - Tremor [Recovering/Resolving]
  - Muscle twitching [Not Recovered/Not Resolved]
  - Road traffic accident [Not Recovered/Not Resolved]
  - Visual field defect [Not Recovered/Not Resolved]
  - Muscle twitching [Not Recovered/Not Resolved]
  - Insomnia [Not Recovered/Not Resolved]
  - Head lag [Not Recovered/Not Resolved]
  - Disorientation [Not Recovered/Not Resolved]
  - Dyskinesia [Not Recovered/Not Resolved]
  - Agitation [Recovering/Resolving]
  - Head titubation [Recovering/Resolving]
  - Abnormal sensation in eye [Recovering/Resolving]
  - Pain [Not Recovered/Not Resolved]
